FAERS Safety Report 4526167-2 (Version None)
Quarter: 2004Q4

REPORT INFORMATION
  Report Type: 
  Country: None (occurrence: None)
  Receive Date: 20041210
  Receipt Date: 20041130
  Transmission Date: 20050328
  Serious: Yes (Other)
  Sender: FDA-Public Use
  Company Number: GBWYE913019JUL04

PATIENT
  Age: 51 Year
  Sex: Male

DRUGS (5)
  1. RAPAMUNE [Suspect]
  2. CYCLOSPORINE [Suspect]
  3. CEPHALOSPORINS AND RELATED SUBSTANCES (CEPHALOSPORNS AND RELATED SUBST [Concomitant]
  4. PREDNISOLONE [Concomitant]
  5. PRAVASTATIN [Concomitant]

REACTIONS (7)
  - AEROMONA INFECTION [None]
  - CIRCULATORY COLLAPSE [None]
  - DRUG INTERACTION [None]
  - HYPERSENSITIVITY [None]
  - PAIN IN EXTREMITY [None]
  - RENAL FAILURE [None]
  - SEPSIS [None]
